FAERS Safety Report 4648721-X (Version None)
Quarter: 2005Q2

REPORT INFORMATION
  Report Type: 
  Country: None (occurrence: None)
  Receive Date: 20050429
  Receipt Date: 20050425
  Transmission Date: 20051028
  Serious: Yes (Other)
  Sender: FDA-Public Use
  Company Number: PHBS2005GB05910

PATIENT
  Age: 26 Year
  Sex: Female

DRUGS (1)
  1. CYCLOSPORINE [Suspect]
     Indication: ECZEMA
     Dosage: 100 MG, BID
     Route: 065

REACTIONS (9)
  - DIPLOPIA [None]
  - EXTRAOCULAR MUSCLE DISORDER [None]
  - HEADACHE [None]
  - HETEROPHORIA [None]
  - MUSCLE SPASMS [None]
  - RETINAL VASCULAR DISORDER [None]
  - STRABISMUS [None]
  - TREMOR [None]
  - VITH NERVE PARALYSIS [None]
